FAERS Safety Report 16990921 (Version 1)
Quarter: 2019Q4

REPORT INFORMATION
  Report Type: Spontaneous
  Country: GB (occurrence: GB)
  Receive Date: 20191104
  Receipt Date: 20191104
  Transmission Date: 20200122
  Serious: Yes (Hospitalization, Other)
  Sender: FDA-Public Use
  Company Number: GB-ALLERGAN-1943950US

PATIENT
  Sex: Male

DRUGS (1)
  1. MESALAZINE UNK [Suspect]
     Active Substance: MESALAMINE
     Indication: COLITIS ULCERATIVE
     Route: 048
     Dates: start: 20160312

REACTIONS (2)
  - Nephrolithiasis [Recovered/Resolved]
  - Renal impairment [Recovered/Resolved]
